FAERS Safety Report 4980269-5 (Version None)
Quarter: 2006Q2

REPORT INFORMATION
  Report Type: 
  Country: None (occurrence: None)
  Receive Date: 20060424
  Receipt Date: 20060406
  Transmission Date: 20061013
  Serious: Yes (Hospitalization)
  Sender: FDA-Public Use
  Company Number: PHEH2006US04591

PATIENT
  Age: 23 Year
  Sex: Male

DRUGS (1)
  1. EXJADE [Suspect]
     Indication: BLOOD IRON INCREASED
     Dosage: 1500 MG, QD
     Route: 048
     Dates: start: 20060323, end: 20060405

REACTIONS (3)
  - HYPOTENSION [None]
  - PYREXIA [None]
  - RASH GENERALISED [None]
